FAERS Safety Report 6572562-X (Version None)
Quarter: 2010Q1

REPORT INFORMATION
  Report Type: 
  Country: None (occurrence: None)
  Receive Date: 20100205
  Receipt Date: 20100127
  Transmission Date: 20100710
  Serious: Yes (Hospitalization, Other)
  Sender: FDA-Public Use
  Company Number: US-ROCHE-676487

PATIENT
  Sex: Female
  Weight: 51 kg

DRUGS (23)
  1. BEVACIZUMAB [Suspect]
     Route: 065
     Dates: start: 20091106, end: 20091218
  2. ATIVAN [Concomitant]
  3. BUPROPION [Concomitant]
     Dates: start: 20090630
  4. COMPAZINE [Concomitant]
  5. DECADRON [Concomitant]
     Route: 048
     Dates: start: 20090224
  6. LACTULOSE [Concomitant]
     Dosage: DOSE: 15-30 MILLILITERS QID.
     Route: 048
     Dates: start: 20091105
  7. MARINOL [Concomitant]
  8. NEXIUM [Concomitant]
  9. NYSTATIN [Concomitant]
     Route: 048
     Dates: start: 20090409
  10. OCELLA [Concomitant]
     Route: 048
     Dates: start: 20091102
  11. OXYCODONE HCL [Concomitant]
     Dosage: DRUG NAME: OXYCODONE CONTROLLED RELEASE.
     Route: 048
     Dates: start: 20090409
  12. OXYCONTIN [Concomitant]
  13. TRAZODONE [Concomitant]
     Dosage: DOSE: 100 MG HS.
     Route: 048
     Dates: start: 20091023
  14. VALTREX [Concomitant]
  15. IBUPROFEN [Concomitant]
     Route: 048
     Dates: start: 20090923
  16. DRONABINOL [Concomitant]
     Dosage: DOSE: 5-10 MG
     Route: 048
     Dates: start: 20090409, end: 20091218
  17. PROCHLORPERAZINE MALEATE [Concomitant]
     Dosage: FREQUEMNCY: EVERY 6 HOURLY, AS AND WHEN NECESSARY.
     Route: 048
     Dates: start: 20090825
  18. CONJUGATED ESTROGENS [Concomitant]
     Dosage: DOSE: 1 APPLICATION TOP QD.
     Dates: start: 20090519, end: 20091218
  19. DOCUSATE SODIUM [Concomitant]
     Route: 048
     Dates: start: 20091218
  20. SENNOSIDE [Concomitant]
     Route: 048
     Dates: start: 20091218
  21. BISACODYL [Concomitant]
     Route: 048
     Dates: end: 20091218
  22. DULCOLAX [Concomitant]
     Route: 048
     Dates: start: 20091218
  23. MIRALAX [Concomitant]
     Route: 048

REACTIONS (5)
  - ABDOMINAL PAIN [None]
  - DISEASE PROGRESSION [None]
  - NAUSEA [None]
  - THROMBOSIS [None]
  - VENA CAVA THROMBOSIS [None]
